FAERS Safety Report 17266979 (Version 1)
Quarter: 2020Q1

REPORT INFORMATION
  Report Type: Spontaneous
  Country: AT (occurrence: AT)
  Receive Date: 20200114
  Receipt Date: 20200114
  Transmission Date: 20200409
  Serious: Yes (Life-Threatening, Hospitalization, Other)
  Sender: FDA-Public Use
  Company Number: AT-PFIZER INC-2020012699

PATIENT
  Age: 71 Year
  Sex: Male
  Weight: 88 kg

DRUGS (1)
  1. XALKORI [Suspect]
     Active Substance: CRIZOTINIB
     Indication: NON-SMALL CELL LUNG CANCER
     Dosage: 500 MG, 1X/DAY
     Route: 048
     Dates: start: 20170111, end: 20170207

REACTIONS (3)
  - Hepatic failure [Unknown]
  - Hepatic encephalopathy [Unknown]
  - Coma [Unknown]

NARRATIVE: CASE EVENT DATE: 20170209
